FAERS Safety Report 10592728 (Version 1)
Quarter: 2014Q4

REPORT INFORMATION
  Report Type: Spontaneous
  Country: GB (occurrence: GB)
  Receive Date: 20141119
  Receipt Date: 20141119
  Transmission Date: 20150529
  Serious: Yes (Hospitalization, Other)
  Sender: FDA-Public Use
  Company Number: GB-PFIZER INC-2014315044

PATIENT
  Age: 92 Year
  Sex: Female

DRUGS (2)
  1. SPIRONOLACTONE. [Suspect]
     Active Substance: SPIRONOLACTONE
     Indication: CARDIAC FAILURE
     Dosage: 12.5 MG, 1X/DAY IN MORNING
     Route: 048
     Dates: end: 20111228
  2. FUROSEMIDE. [Suspect]
     Active Substance: FUROSEMIDE
     Indication: CARDIAC FAILURE
     Dosage: 40 MG, 1X/DAY IN MORNING
     Route: 048
     Dates: end: 20121228

REACTIONS (5)
  - Acute kidney injury [Recovered/Resolved]
  - Confusional state [Unknown]
  - Lower respiratory tract infection [Unknown]
  - Coma scale abnormal [Unknown]
  - Suprapubic pain [Unknown]

NARRATIVE: CASE EVENT DATE: 20121228
